FAERS Safety Report 25311943 (Version 1)
Quarter: 2025Q2

REPORT INFORMATION
  Report Type: Spontaneous
  Country: GB (occurrence: GB)
  Receive Date: 20250514
  Receipt Date: 20250514
  Transmission Date: 20250716
  Serious: Yes (Other)
  Sender: UCB
  Company Number: None

PATIENT
  Age: 21 Year
  Sex: Male

DRUGS (5)
  1. FENFLURAMINE HYDROCHLORIDE [Suspect]
     Active Substance: FENFLURAMINE HYDROCHLORIDE
     Indication: Adverse drug reaction
     Dates: start: 20220401
  2. FENFLURAMINE HYDROCHLORIDE [Suspect]
     Active Substance: FENFLURAMINE HYDROCHLORIDE
     Indication: Severe myoclonic epilepsy of infancy
  3. STIRIPENTOL [Concomitant]
     Active Substance: STIRIPENTOL
     Indication: Product used for unknown indication
  4. CLOBAZAM [Concomitant]
     Active Substance: CLOBAZAM
     Indication: Product used for unknown indication
  5. VALPROATE SODIUM [Concomitant]
     Active Substance: VALPROATE SODIUM
     Indication: Product used for unknown indication

REACTIONS (1)
  - Mitral valve incompetence [Not Recovered/Not Resolved]

NARRATIVE: CASE EVENT DATE: 20250430
